FAERS Safety Report 8780623 (Version 1)
Quarter: 2012Q4

REPORT INFORMATION
  Report Type: 
  Country: BR (occurrence: BR)
  Receive Date: 20120913
  Receipt Date: 20120913
  Transmission Date: 20130627
  Serious: Yes (Other)
  Sender: FDA-Public Use
  Company Number: PHHY2012BR079179

PATIENT
  Age: 25 Year
  Sex: Female

DRUGS (4)
  1. CICLOSPORIN [Suspect]
     Indication: RENAL TRANSPLANT
  2. NIFEDIPINE [Concomitant]
     Indication: HYPERTENSION
  3. PREDNISONE [Concomitant]
     Indication: RENAL TRANSPLANT
  4. AZATHIOPRINE [Concomitant]
     Indication: RENAL TRANSPLANT

REACTIONS (1)
  - Leukoplakia [Unknown]
